FAERS Safety Report 4631543-3 (Version None)
Quarter: 2005Q2

REPORT INFORMATION
  Report Type: 
  Country: None (occurrence: None)
  Receive Date: 20050407
  Receipt Date: 20050325
  Transmission Date: 20051028
  Serious: Yes (Hospitalization, Other)
  Sender: FDA-Public Use
  Company Number: 2005045175

PATIENT
  Age: 31 Year
  Sex: Male
  Weight: 62 kg

DRUGS (3)
  1. SOLU-MEDROL [Suspect]
     Indication: PULMONARY OEDEMA
     Dosage: 125 MG (125 MG, 1 IN 1 D), INTRAVENOUS
     Route: 042
     Dates: start: 20050221, end: 20050221
  2. LACTATED RINGER'S [Concomitant]
  3. SODIUM CHLORIDE 0.9% [Concomitant]

REACTIONS (5)
  - DERMATITIS CONTACT [None]
  - GENERALISED ERYTHEMA [None]
  - PRURITUS [None]
  - RASH PAPULAR [None]
  - URTICARIA GENERALISED [None]
